FAERS Safety Report 7030720-4 (Version None)
Quarter: 2010Q4

REPORT INFORMATION
  Report Type: 
  Country: None (occurrence: None)
  Receive Date: 20101006
  Receipt Date: 20100929
  Transmission Date: 20110411
  Serious: Yes (Disabling, Other)
  Sender: FDA-Public Use
  Company Number: US-BAYER-201019822BCC

PATIENT
  Age: 94 Year
  Sex: Female
  Weight: 73 kg

DRUGS (1)
  1. ALEVE (CAPLET) [Suspect]
     Indication: ARTHRALGIA
     Dosage: TOTAL DAILY DOSE: 440 MG  UNIT DOSE: 220 MG
     Route: 065

REACTIONS (5)
  - APHAGIA [None]
  - GASTROINTESTINAL TUBE INSERTION [None]
  - OESOPHAGEAL DISORDER [None]
  - OESOPHAGEAL INJURY [None]
  - OROPHARYNGEAL PAIN [None]
